FAERS Safety Report 24609887 (Version 4)
Quarter: 2025Q1

REPORT INFORMATION
  Report Type: Spontaneous
  Country: US (occurrence: US)
  Receive Date: 20241112
  Receipt Date: 20250303
  Transmission Date: 20250408
  Serious: No
  Sender: SANOFI AVENTIS
  Company Number: US-SA-2024SA324537

PATIENT
  Age: 59 Year
  Sex: Female

DRUGS (7)
  1. DUPIXENT [Suspect]
     Active Substance: DUPILUMAB
     Indication: Nasal polyps
     Dosage: 300 MG, QOW
     Route: 058
  2. Propionate [Concomitant]
  3. FLUTICASONE [Concomitant]
     Active Substance: FLUTICASONE
  4. AZELASTINE [Concomitant]
     Active Substance: AZELASTINE
  5. ALBUTEROL SULFATE [Concomitant]
     Active Substance: ALBUTEROL SULFATE
  6. SINGULAIR [Concomitant]
     Active Substance: MONTELUKAST SODIUM
     Dosage: 1 DF, QD
  7. OMEPRAZOLE [Concomitant]
     Active Substance: OMEPRAZOLE

REACTIONS (12)
  - Tracheal dilation procedure [Unknown]
  - Snoring [Unknown]
  - Cough [Unknown]
  - Wheezing [Not Recovered/Not Resolved]
  - Dysphonia [Unknown]
  - Sleep apnoea syndrome [Unknown]
  - Staphylococcal infection [Unknown]
  - Stridor [Unknown]
  - Dyspnoea [Unknown]
  - Pruritus [Unknown]
  - Arthralgia [Unknown]
  - Rash [Unknown]

NARRATIVE: CASE EVENT DATE: 20231001
